FAERS Safety Report 21064174 (Version 1)
Quarter: 2022Q3

REPORT INFORMATION
  Report Type: Report from Study
  Country: IT (occurrence: IT)
  Receive Date: 20220711
  Receipt Date: 20220711
  Transmission Date: 20221027
  Serious: Yes (Life-Threatening, Hospitalization)
  Sender: FDA-Public Use
  Company Number: IT-AMGEN-ITACT2022115741

PATIENT
  Age: 63 Year
  Sex: Male
  Weight: 78 kg

DRUGS (11)
  1. PANITUMUMAB [Suspect]
     Active Substance: PANITUMUMAB
     Indication: Colorectal cancer metastatic
     Dosage: 460 MILLIGRAM
     Route: 042
     Dates: start: 20210305
  2. PANITUMUMAB [Suspect]
     Active Substance: PANITUMUMAB
     Dosage: 430 MILLIGRAM
     Route: 042
     Dates: start: 20210329
  3. IRINOTECAN [Suspect]
     Active Substance: IRINOTECAN
     Indication: Colorectal cancer metastatic
     Dosage: 280 MILLIGRAM
     Route: 042
     Dates: start: 20210305
  4. IRINOTECAN [Suspect]
     Active Substance: IRINOTECAN
     Dosage: 140 MILLIGRAM
     Route: 042
     Dates: start: 20210329
  5. OXALIPLATIN [Suspect]
     Active Substance: OXALIPLATIN
     Indication: Colorectal cancer metastatic
     Dosage: 160 MILLIGRAM
     Route: 042
     Dates: start: 20210305
  6. OXALIPLATIN [Suspect]
     Active Substance: OXALIPLATIN
     Dosage: 150 MILLIGRAM
     Route: 042
     Dates: start: 20210329
  7. FLUOROURACIL [Suspect]
     Active Substance: FLUOROURACIL
     Indication: Colorectal cancer metastatic
     Dosage: 2280 MILLIGRAM
     Route: 042
     Dates: start: 20210305
  8. FLUOROURACIL [Suspect]
     Active Substance: FLUOROURACIL
     Dosage: 2200 MILLIGRAM
     Route: 042
     Dates: start: 20210329
  9. PANTOPRAZOLE [Concomitant]
     Active Substance: PANTOPRAZOLE
     Dosage: 20 MILLIGRAM, QD
     Route: 048
  10. PANCRELIPASE [Concomitant]
     Active Substance: PANCRELIPASE
     Dosage: 10000 INTERNATIONAL UNIT, (5 CAPS A DAY)
     Route: 048
  11. POTASSIUM CHLORIDE [Concomitant]
     Active Substance: POTASSIUM CHLORIDE
     Dosage: 600 MILLIGRAM (3 CAP A DAY)
     Route: 048

REACTIONS (1)
  - Staphylococcal infection [Recovered/Resolved with Sequelae]

NARRATIVE: CASE EVENT DATE: 20210317
